FAERS Safety Report 11749906 (Version 3)
Quarter: 2015Q4

REPORT INFORMATION
  Report Type: Spontaneous
  Country: JP (occurrence: JP)
  Receive Date: 20151118
  Receipt Date: 20151201
  Transmission Date: 20160304
  Serious: Yes (Death, Hospitalization, Other)
  Sender: FDA-Public Use
  Company Number: JP-PFIZER INC-2015264231

PATIENT
  Age: 64 Year
  Sex: Male
  Weight: 67 kg

DRUGS (16)
  1. LEVOFOLINATE YAKULT [Suspect]
     Active Substance: LEVOLEUCOVORIN CALCIUM
     Indication: PANCREATIC CARCINOMA
     Dosage: 354 MG/BODY (199.3 MG/M2), ONCE A DAY
     Route: 041
     Dates: start: 20140508, end: 20140508
  2. LEVOFOLINATE YAKULT [Suspect]
     Active Substance: LEVOLEUCOVORIN CALCIUM
     Dosage: 346 MG/BODY (194.8 MG/M2), ONCE A DAY
     Route: 041
     Dates: start: 20140530, end: 20140530
  3. CAMPTO [Suspect]
     Active Substance: IRINOTECAN
     Indication: PANCREATIC CARCINOMA
     Dosage: 265 MG/BODY (149.2 MG/M2), ONCE A DAY
     Route: 041
     Dates: start: 20140508, end: 20140508
  4. CAMPTO [Suspect]
     Active Substance: IRINOTECAN
     Dosage: 207 MG/BODY (116.6 MG/M2), ONCE A DAY
     Route: 041
     Dates: start: 20140530, end: 20140530
  5. ELPLAT [Suspect]
     Active Substance: OXALIPLATIN
     Dosage: 147 MG, ONCE A DAY
     Route: 041
     Dates: start: 20140613, end: 20140613
  6. ELPLAT [Suspect]
     Active Substance: OXALIPLATIN
     Dosage: 140 MG/BODY (78.8 MG/M2), ONCE A DAY
     Route: 041
     Dates: start: 20140704, end: 20140704
  7. CAMPTO [Suspect]
     Active Substance: IRINOTECAN
     Dosage: 207 MG, ONCE A DAY
     Route: 041
     Dates: start: 20140613, end: 20140613
  8. 5-FU [Suspect]
     Active Substance: FLUOROURACIL
     Dosage: 4150 MG/BODY/D1-2 (2336.7 MG/M2/D1-2), CYCLIC, D1-2
     Route: 041
     Dates: start: 20140530, end: 20140530
  9. 5-FU [Suspect]
     Active Substance: FLUOROURACIL
     Dosage: 3060 MG/BODY/D1-2 (1723 MG/M2/D1-2), CYCLIC, D1-2
     Route: 041
     Dates: start: 20140704, end: 20140704
  10. ELPLAT [Suspect]
     Active Substance: OXALIPLATIN
     Indication: PANCREATIC CARCINOMA
     Dosage: 150 MG/BODY (84.5 MG/M2), ONCE A DAY
     Route: 041
     Dates: start: 20140508, end: 20140508
  11. ELPLAT [Suspect]
     Active Substance: OXALIPLATIN
     Dosage: 147 MG/BODY (82.8 MG/M2), ONCE A DAY
     Route: 041
     Dates: start: 20140530, end: 20140530
  12. LEVOFOLINATE YAKULT [Suspect]
     Active Substance: LEVOLEUCOVORIN CALCIUM
     Dosage: 346 MG, ONCE A DAY
     Route: 041
     Dates: start: 20140613, end: 20140613
  13. 5-FU [Suspect]
     Active Substance: FLUOROURACIL
     Indication: PANCREATIC CARCINOMA
     Dosage: 4240 MG/BODY/D1-2 (2387.4 MG/M2/D1-2), CYCLIC, D1-2
     Route: 041
     Dates: start: 20140508, end: 20140508
  14. LEVOFOLINATE YAKULT [Suspect]
     Active Substance: LEVOLEUCOVORIN CALCIUM
     Dosage: 340 MG/BODY (191.4 MG/M2), ONCE A DAY
     Route: 041
     Dates: start: 20140704, end: 20140704
  15. 5-FU [Suspect]
     Active Substance: FLUOROURACIL
     Dosage: 3100 MG/BODY/D1-2 (1745.5 MG/M2/D1-2), CYCLIC, D1-2
     Route: 041
     Dates: start: 20140613, end: 20140613
  16. CAMPTO [Suspect]
     Active Substance: IRINOTECAN
     Dosage: 165 MG/BODY (92.9 MG/M2), ONCE A DAY
     Route: 041
     Dates: start: 20140704, end: 20140704

REACTIONS (10)
  - Nausea [Recovered/Resolved]
  - Neutrophil count decreased [Recovering/Resolving]
  - Disease progression [Fatal]
  - Peripheral sensory neuropathy [Not Recovered/Not Resolved]
  - Decreased appetite [Not Recovered/Not Resolved]
  - White blood cell count decreased [Recovering/Resolving]
  - Stomatitis [Not Recovered/Not Resolved]
  - Fatigue [Not Recovered/Not Resolved]
  - Pancreatic carcinoma [Fatal]
  - Diabetes mellitus [Recovering/Resolving]

NARRATIVE: CASE EVENT DATE: 20140525
